FAERS Safety Report 20198192 (Version 10)
Quarter: 2022Q4

REPORT INFORMATION
  Report Type: Report from Study
  Country: US (occurrence: US)
  Receive Date: 20211217
  Receipt Date: 20221114
  Transmission Date: 20230113
  Serious: Yes (Hospitalization, Other)
  Sender: FDA-Public Use
  Company Number: US-GLAXOSMITHKLINE-US2021AMR220119

PATIENT

DRUGS (1)
  1. BELANTAMAB MAFODOTIN [Suspect]
     Active Substance: BELANTAMAB MAFODOTIN
     Indication: Product used for unknown indication
     Dosage: UNK
     Dates: start: 20211001, end: 20220604

REACTIONS (6)
  - Hospitalisation [Unknown]
  - Pneumonitis [Unknown]
  - Keratopathy [Unknown]
  - Visual acuity reduced [Recovered/Resolved]
  - Night blindness [Unknown]
  - Supportive care [Unknown]

NARRATIVE: CASE EVENT DATE: 20210101
